FAERS Safety Report 6442125-5 (Version None)
Quarter: 2009Q4

REPORT INFORMATION
  Report Type: 
  Country: None (occurrence: None)
  Receive Date: 20091116
  Receipt Date: 20091104
  Transmission Date: 20100525
  Serious: Yes (Other)
  Sender: FDA-Public Use
  Company Number: PHHY2009BR19847

PATIENT
  Age: 58 Year
  Sex: Female

DRUGS (7)
  1. FORASEQ [Suspect]
     Indication: ASTHMA
     Dosage: 1 DF, QD
  2. FORASEQ [Suspect]
     Dosage: 2 DF, QD
  3. BROMAZEPAM [Concomitant]
     Indication: EMOTIONAL DISORDER
  4. BEROTEC [Concomitant]
     Dosage: NEBULIZATION
  5. ATROVENT [Concomitant]
     Dosage: NEBULIZATION
  6. TYLEX (PARACETAMOL/CODEINE PHOSPHATE) [Concomitant]
  7. MORFINE [Concomitant]
     Route: 042

REACTIONS (9)
  - HAEMORRHAGE [None]
  - INTERVERTEBRAL DISC PROTRUSION [None]
  - LUNG DISORDER [None]
  - LUNG OPERATION [None]
  - NEOPLASM MALIGNANT [None]
  - NERVOUSNESS [None]
  - PRODUCT QUALITY ISSUE [None]
  - TREMOR [None]
  - UTERINE LEIOMYOMA [None]
